FAERS Safety Report 7304977-6 (Version None)
Quarter: 2011Q1

REPORT INFORMATION
  Report Type: 
  Country: None (occurrence: None)
  Receive Date: 20110222
  Receipt Date: 20100726
  Transmission Date: 20110831
  Serious: Yes (Other)
  Sender: FDA-Public Use
  Company Number: US-PFIZER INC-2010093416

PATIENT

DRUGS (2)
  1. XALATAN [Suspect]
     Dosage: UNK
  2. ALPHAGAN [Suspect]
     Dosage: UNK

REACTIONS (2)
  - EYELID OEDEMA [None]
  - EYELID MARGIN CRUSTING [None]
